FAERS Safety Report 8293815-3 (Version None)
Quarter: 2012Q2

REPORT INFORMATION
  Report Type: 
  Country: None (occurrence: None)
  Receive Date: 20120413
  Receipt Date: 20120326
  Transmission Date: 20120825
  Serious: Yes (Hospitalization)
  Sender: FDA-Public Use
  Company Number: 12027ADE

PATIENT
  Age: 32 Year
  Sex: Female
  Weight: 63.5036 kg

DRUGS (4)
  1. OTHER UNDISCLOSED PRENATAL VITAMINS [Concomitant]
  2. CENTRUM [Concomitant]
  3. MAGNESIUM TABLET [Concomitant]
  4. CITRANATAL [Suspect]
     Indication: VITAMIN SUPPLEMENTATION
     Dates: start: 20080101, end: 20090501

REACTIONS (3)
  - PREGNANCY [None]
  - EXTRASYSTOLES [None]
  - MATERNAL EXPOSURE DURING PREGNANCY [None]
